FAERS Safety Report 8097559-2 (Version None)
Quarter: 2012Q1

REPORT INFORMATION
  Report Type: 
  Country: None (occurrence: None)
  Receive Date: 20120128
  Receipt Date: 20110707
  Transmission Date: 20120608
  Serious: No
  Sender: FDA-Public Use
  Company Number: US-ABBOTT-11P-163-0837102-00

PATIENT
  Sex: Male
  Weight: 104.42 kg

DRUGS (10)
  1. VICODIN [Concomitant]
     Indication: PAIN
  2. ENBREL [Concomitant]
     Indication: RHEUMATOID ARTHRITIS
     Dates: start: 20101201
  3. LYRICA [Concomitant]
     Indication: FIBROMYALGIA
  4. PLAQUENIL [Concomitant]
     Indication: RHEUMATOID ARTHRITIS
  5. HUMIRA [Suspect]
     Indication: RHEUMATOID ARTHRITIS
     Dates: start: 20100801, end: 20101201
  6. PROTONIX [Concomitant]
     Indication: GASTROOESOPHAGEAL REFLUX DISEASE
  7. AVAPRO [Concomitant]
     Indication: HYPERTENSION
  8. CYMBALTA [Concomitant]
     Indication: PAIN
  9. ULTRAM [Concomitant]
     Indication: PAIN
  10. URECHOLINE [Concomitant]
     Indication: BLADDER DISORDER

REACTIONS (1)
  - DRUG INEFFECTIVE [None]
